FAERS Safety Report 9789978 (Version 1)
Quarter: 2013Q4

REPORT INFORMATION
  Report Type: Spontaneous
  Country: US (occurrence: None)
  Receive Date: 20131230
  Receipt Date: 20131230
  Transmission Date: 20140711
  Serious: Yes (Other)
  Sender: FDA-Public Use
  Company Number: None

PATIENT
  Age: 46 Year
  Sex: Female
  Weight: 83.92 kg

DRUGS (1)
  1. MIRENA IUD BAYER [Suspect]

REACTIONS (5)
  - Libido decreased [None]
  - Mood swings [None]
  - Flank pain [None]
  - Depression [None]
  - Vaginal haemorrhage [None]
